FAERS Safety Report 4826111-4 (Version None)
Quarter: 2005Q4

REPORT INFORMATION
  Report Type: 
  Country: None (occurrence: None)
  Receive Date: 20051111
  Receipt Date: 20050803
  Transmission Date: 20060501
  Serious: Yes (Hospitalization, Disabling)
  Sender: FDA-Public Use
  Company Number: US-MERCK-0508USA01254

PATIENT
  Age: 40 Year
  Sex: Female
  Weight: 80 kg

DRUGS (12)
  1. VIOXX [Suspect]
     Indication: ARTHRALGIA
     Route: 048
     Dates: start: 20000831, end: 20010501
  2. VIOXX [Suspect]
     Indication: TENDONITIS
     Route: 048
     Dates: start: 20000831, end: 20010501
  3. CLARITIN-D [Concomitant]
     Route: 065
  4. WELLBUTRIN SR [Concomitant]
     Route: 065
  5. DEPO-PROVERA [Concomitant]
     Route: 065
  6. IBUPROFEN [Concomitant]
     Route: 065
  7. VICODIN [Concomitant]
     Route: 065
  8. DAYPRO [Concomitant]
     Route: 065
  9. ULTRAM [Concomitant]
     Route: 065
  10. PERCOCET [Concomitant]
     Route: 065
  11. FLEXERIL [Concomitant]
     Route: 065
  12. [THERAPY UNSPECIFIED] [Concomitant]
     Route: 065

REACTIONS (14)
  - ARTHRALGIA [None]
  - ARTHROPATHY [None]
  - BLOOD DISORDER [None]
  - CEREBROVASCULAR ACCIDENT [None]
  - COAGULOPATHY [None]
  - CONSTIPATION [None]
  - EMOTIONAL DISTRESS [None]
  - GASTROOESOPHAGEAL REFLUX DISEASE [None]
  - HAEMORRHAGE [None]
  - JOINT ARTHROPLASTY [None]
  - LUMBAR RADICULOPATHY [None]
  - OEDEMA PERIPHERAL [None]
  - PROTEIN S DEFICIENCY [None]
  - VOMITING [None]
